FAERS Safety Report 15849363 (Version 3)
Quarter: 2019Q1

REPORT INFORMATION
  Report Type: Spontaneous
  Country: JP (occurrence: JP)
  Receive Date: 20190121
  Receipt Date: 20190320
  Transmission Date: 20190417
  Serious: Yes (Hospitalization)
  Sender: FDA-Public Use
  Company Number: JP-SA-2019SA013120

PATIENT
  Age: 69 Year
  Sex: Female
  Weight: 45 kg

DRUGS (10)
  1. ELPLAT [Suspect]
     Active Substance: OXALIPLATIN
     Dosage: 100 MG, QD
     Route: 041
     Dates: start: 20190104, end: 20190104
  2. ELPLAT [Suspect]
     Active Substance: OXALIPLATIN
     Dosage: 100 MG, QD
     Route: 041
     Dates: start: 20190122, end: 20190122
  3. GRANISETRON [GRANISETRON HYDROCHLORIDE] [Concomitant]
     Dosage: UNK
     Route: 065
     Dates: start: 20180829, end: 20190122
  4. LEVOFOLINATE CALCIUM [Concomitant]
     Active Substance: LEVOLEUCOVORIN CALCIUM
     Dosage: UNK
     Route: 065
     Dates: start: 20190122, end: 20190122
  5. POLARAMINE [Concomitant]
     Active Substance: DEXCHLORPHENIRAMINE MALEATE
     Dosage: UNK
     Route: 065
     Dates: start: 20190104, end: 20190122
  6. LEVOFOLINATE CALCIUM [Concomitant]
     Active Substance: LEVOLEUCOVORIN CALCIUM
     Dosage: UNK
     Route: 065
     Dates: start: 20190104, end: 20190104
  7. ELPLAT [Suspect]
     Active Substance: OXALIPLATIN
     Indication: RECTAL CANCER
     Dosage: 100 MG, QD
     Route: 041
     Dates: start: 20180829, end: 20180829
  8. LEVOFOLINATE CALCIUM [Concomitant]
     Active Substance: LEVOLEUCOVORIN CALCIUM
     Dosage: UNK
     Route: 065
     Dates: start: 20180828, end: 20180828
  9. DEXART [Concomitant]
     Active Substance: DEXAMETHASONE SODIUM PHOSPHATE
     Dosage: UNK
     Route: 065
     Dates: start: 20180829, end: 20190122
  10. 5-FU [FLUOROURACIL] [Concomitant]
     Active Substance: FLUOROURACIL
     Dosage: UNK
     Route: 065
     Dates: start: 20180829

REACTIONS (1)
  - Hypersensitivity [Recovering/Resolving]

NARRATIVE: CASE EVENT DATE: 20190104
